FAERS Safety Report 8907172 (Version 2)
Quarter: 2013Q1

REPORT INFORMATION
  Report Type: Spontaneous
  Country: US (occurrence: US)
  Receive Date: 20121113
  Receipt Date: 20130102
  Transmission Date: 20140127
  Serious: No
  Sender: FDA-Public Use
  Company Number: US-AMGEN-USASP2012010780

PATIENT
  Age: 68 Year
  Sex: Male

DRUGS (4)
  1. ENBREL [Suspect]
     Indication: RHEUMATOID ARTHRITIS
     Dosage: 50 MG, QWK
     Route: 058
  2. PLAVIX [Concomitant]
  3. ASPIRIN [Concomitant]
  4. FISH OIL [Concomitant]

REACTIONS (3)
  - Folliculitis [Not Recovered/Not Resolved]
  - Emotional distress [Unknown]
  - Respiratory tract infection [Recovered/Resolved]
